FAERS Safety Report 20912093 (Version 1)
Quarter: 2022Q2

REPORT INFORMATION
  Report Type: Spontaneous
  Country: US (occurrence: US)
  Receive Date: 20220603
  Receipt Date: 20220603
  Transmission Date: 20220721
  Serious: No
  Sender: FDA-Public Use
  Company Number: US-BIOVITRUM-2022US07214

PATIENT
  Sex: Male
  Weight: 11 kg

DRUGS (18)
  1. SYNAGIS [Suspect]
     Active Substance: PALIVIZUMAB
     Indication: Heart disease congenital
     Route: 030
  2. LEVOTHYROXINE SODIUM [Concomitant]
     Active Substance: LEVOTHYROXINE SODIUM
  3. GLUTATHIONE-L [Concomitant]
     Dosage: 100 PERCENT POWDER
  4. FISH OIL\OMEGA-3 FATTY ACIDS [Concomitant]
     Active Substance: FISH OIL\OMEGA-3 FATTY ACIDS
  5. VITAMINS [Concomitant]
     Active Substance: VITAMINS
     Dosage: 9 MG/15 ML LIQUID
  6. ENALAPRIL MALEATE [Concomitant]
     Active Substance: ENALAPRIL MALEATE
  7. CHARCOAL ACTIVATED [Concomitant]
     Active Substance: ACTIVATED CHARCOAL
  8. IBUPROFEN [Concomitant]
     Active Substance: IBUPROFEN
     Dosage: 100 MG/5 ML
  9. MCT OIL [Concomitant]
     Dosage: 7.7 KCAL/ML OIL
  10. PROBIOTICS NOS [Concomitant]
     Active Substance: PROBIOTICS NOS
     Dosage: 100B CELL CAPSULE
  11. HERBALS\HOMEOPATHICS\GOLDENSEAL [Concomitant]
     Active Substance: HERBALS\HOMEOPATHICS\GOLDENSEAL
  12. SYNAGIS [Suspect]
     Active Substance: PALIVIZUMAB
     Indication: Premature baby
  13. SYNAGIS [Suspect]
     Active Substance: PALIVIZUMAB
     Indication: Atrioventricular septal defect
  14. AMOXICILLIN [Suspect]
     Active Substance: AMOXICILLIN
  15. DIPHENHYDRAMINE HYDROCHLORIDE [Concomitant]
     Active Substance: DIPHENHYDRAMINE HYDROCHLORIDE
  16. SYNAGIS [Suspect]
     Active Substance: PALIVIZUMAB
     Indication: Aorta hypoplasia
  17. COLLOIDAL SILVER [Concomitant]
     Active Substance: SILVER
  18. SILDENAFIL CITRATE [Concomitant]
     Active Substance: SILDENAFIL CITRATE

REACTIONS (5)
  - Teething [Unknown]
  - Ear infection [Unknown]
  - Hand-foot-and-mouth disease [Unknown]
  - Constipation [Unknown]
  - Rash [Unknown]
